FAERS Safety Report 6015536-X (Version None)
Quarter: 2008Q4

REPORT INFORMATION
  Report Type: 
  Country: None (occurrence: None)
  Receive Date: 20081222
  Receipt Date: 20081210
  Transmission Date: 20090506
  Serious: Yes (Hospitalization)
  Sender: FDA-Public Use
  Company Number: ES-PFIZER INC-2008152859

PATIENT

DRUGS (6)
  1. EPLERENONE [Suspect]
     Indication: CARDIAC FAILURE
     Dosage: 25 MG, 1X/DAY
     Route: 048
     Dates: start: 20080311, end: 20080313
  2. CARVEDILOL [Concomitant]
     Dosage: UNK
     Route: 048
  3. SIMVASTATIN [Concomitant]
     Dosage: UNK
     Route: 048
  4. CLOPIDOGREL [Concomitant]
     Dosage: UNK
  5. ASPIRIN [Concomitant]
     Dosage: 100 MG, 1X/DAY
     Route: 048
  6. ATACAND [Concomitant]
     Dosage: 4 MG, 1X/DAY
     Route: 048

REACTIONS (1)
  - ANAPHYLACTIC SHOCK [None]
